FAERS Safety Report 15315569 (Version 1)
Quarter: 2018Q3

REPORT INFORMATION
  Report Type: Spontaneous
  Country: US (occurrence: US)
  Receive Date: 20180815
  Receipt Date: 20180815
  Transmission Date: 20181010
  Serious: No
  Sender: FDA-Public Use
  Company Number: None

PATIENT
  Sex: Female
  Weight: 102.51 kg

DRUGS (1)
  1. ZOLEDRONIC ACID 5MG/100ML [Suspect]
     Active Substance: ZOLEDRONIC ACID
     Indication: SENILE OSTEOPOROSIS
     Dosage: 5MG YEARLY IV
     Route: 042
     Dates: start: 201504, end: 201708

REACTIONS (2)
  - Therapy cessation [None]
  - Post procedural complication [None]
